FAERS Safety Report 11993373 (Version 1)
Quarter: 2016Q1

REPORT INFORMATION
  Report Type: Spontaneous
  Country: US (occurrence: None)
  Receive Date: 20160202
  Receipt Date: 20160202
  Transmission Date: 20160526
  Serious: No
  Sender: FDA-Public Use
  Company Number: None

PATIENT
  Age: 48 Year
  Sex: Female

DRUGS (8)
  1. PREDNISONE. [Concomitant]
     Active Substance: PREDNISONE
  2. LUPRON DEPOT [Suspect]
     Active Substance: LEUPROLIDE ACETATE
     Indication: UTERINE LEIOMYOMA
     Route: 028
     Dates: start: 20151028
  3. IPRATROPIUM [Concomitant]
     Active Substance: IPRATROPIUM
  4. CLODERM [Concomitant]
     Active Substance: CLOCORTOLONE PIVALATE
  5. FLUTICASONE [Concomitant]
     Active Substance: FLUTICASONE\FLUTICASONE PROPIONATE
  6. CEFDINIR. [Concomitant]
     Active Substance: CEFDINIR
  7. AZITHROMYCIN ANHYDROUS. [Concomitant]
     Active Substance: AZITHROMYCIN ANHYDROUS
  8. AZELASTINE [Concomitant]
     Active Substance: AZELASTINE

REACTIONS (3)
  - Hot flush [None]
  - Dizziness [None]
  - Swelling face [None]

NARRATIVE: CASE EVENT DATE: 201601
